FAERS Safety Report 24697130 (Version 1)
Quarter: 2024Q4

REPORT INFORMATION
  Report Type: Spontaneous
  Country: IT (occurrence: IT)
  Receive Date: 20241204
  Receipt Date: 20241204
  Transmission Date: 20250115
  Serious: Yes (Other)
  Sender: ROCHE
  Company Number: None

PATIENT
  Age: 52 Year
  Sex: Female

DRUGS (1)
  1. OCREVUS [Suspect]
     Active Substance: OCRELIZUMAB
     Indication: Primary progressive multiple sclerosis
     Dosage: OCREVUS 600 MG OGNI 6 MESI
     Route: 042
     Dates: start: 201811

REACTIONS (1)
  - Meningioma [Not Recovered/Not Resolved]

NARRATIVE: CASE EVENT DATE: 20240517
